FAERS Safety Report 23680022 (Version 1)
Quarter: 2024Q1

REPORT INFORMATION
  Report Type: Spontaneous
  Country: US (occurrence: US)
  Receive Date: 20240327
  Receipt Date: 20240327
  Transmission Date: 20240409
  Serious: Yes (Hospitalization, Other)
  Sender: FDA-Public Use
  Company Number: US-BRISTOL-MYERS SQUIBB COMPANY-2024-047749

PATIENT
  Age: 60 Year
  Sex: Female
  Weight: 70.31 kg

DRUGS (2)
  1. ELIQUIS [Suspect]
     Active Substance: APIXABAN
     Indication: Pulmonary embolism
     Dosage: 10MG BID FOR 7 DAYS
     Route: 048
  2. ELIQUIS [Suspect]
     Active Substance: APIXABAN
     Route: 048

REACTIONS (5)
  - Movement disorder [Unknown]
  - Dyspnoea [Unknown]
  - Sarcoidosis [Not Recovered/Not Resolved]
  - Metastases to meninges [Unknown]
  - Breast mass [Recovering/Resolving]

NARRATIVE: CASE EVENT DATE: 20230101
